FAERS Safety Report 15795276 (Version 7)
Quarter: 2023Q2

REPORT INFORMATION
  Report Type: Report from Study
  Country: FR (occurrence: FR)
  Receive Date: 20190107
  Receipt Date: 20230410
  Transmission Date: 20230721
  Serious: Yes (Death, Hospitalization)
  Sender: FDA-Public Use
  Company Number: FR-SA-2019SA001925

PATIENT
  Age: 73 Year
  Sex: Female
  Weight: 54 kg

DRUGS (14)
  1. AFLIBERCEPT [Suspect]
     Active Substance: AFLIBERCEPT
     Indication: Colorectal cancer metastatic
     Dosage: UNK, QCY
     Route: 042
     Dates: start: 20181128, end: 20181128
  2. IRINOTECAN [Suspect]
     Active Substance: IRINOTECAN
     Indication: Colorectal cancer metastatic
     Dosage: UNK, QCY
     Route: 042
     Dates: start: 20181128, end: 20181128
  3. FLUOROURACIL [Suspect]
     Active Substance: FLUOROURACIL
     Indication: Colorectal cancer metastatic
     Dosage: UNK, QCY
     Route: 042
     Dates: start: 20181128, end: 20181128
  4. LEUCOVORIN CALCIUM [Suspect]
     Active Substance: LEUCOVORIN CALCIUM
     Indication: Colorectal cancer metastatic
     Dosage: UNK, QCY
     Route: 042
     Dates: start: 20181128, end: 20181128
  5. TAHOR [Concomitant]
     Active Substance: ATORVASTATIN CALCIUM
     Indication: Hypercholesterolaemia
     Dosage: 1 CP, QD
     Route: 048
  6. THERALITH [Concomitant]
     Indication: Bipolar disorder
     Dosage: 1 DF, QD
     Route: 048
  7. ALPRAZOLAM [Concomitant]
     Active Substance: ALPRAZOLAM
     Indication: Anxiety
     Dosage: 0.2 MG
     Dates: start: 20181218, end: 20190118
  8. METHYLPREDNISOLONE [Concomitant]
     Active Substance: METHYLPREDNISOLONE
     Indication: Hypervolaemia
     Dosage: 40 MG
     Dates: start: 20190101, end: 20190118
  9. CEFTRIAXONE SODIUM [Concomitant]
     Active Substance: CEFTRIAXONE SODIUM
     Indication: Prophylaxis
     Dosage: 2 G
     Dates: start: 20181226, end: 20190118
  10. TRAMADOL [Concomitant]
     Active Substance: TRAMADOL
     Indication: Pain
     Dosage: 100 MG
     Dates: start: 20181219, end: 20190118
  11. LOPERAMIDE [Concomitant]
     Active Substance: LOPERAMIDE
     Indication: Diarrhoea
     Dosage: 2 MG
     Dates: start: 20181220, end: 20190118
  12. POLYIONIQUE [Concomitant]
     Indication: Hypervolaemia
     Dosage: 500 ML
     Dates: start: 20181218, end: 20190118
  13. MIDAZOLAM [Concomitant]
     Active Substance: MIDAZOLAM
     Dosage: UNK
  14. MORPHINE [Concomitant]
     Active Substance: MORPHINE
     Dosage: UNK

REACTIONS (1)
  - General physical health deterioration [Fatal]

NARRATIVE: CASE EVENT DATE: 20181218
